FAERS Safety Report 11796946 (Version 1)
Quarter: 2015Q4

REPORT INFORMATION
  Report Type: Spontaneous
  Country: US (occurrence: None)
  Receive Date: 20151202
  Receipt Date: 20151202
  Transmission Date: 20160305
  Serious: Yes (Life-Threatening, Hospitalization, Disabling)
  Sender: FDA-Public Use
  Company Number: None

PATIENT
  Age: 22 Year
  Sex: Female
  Weight: 53.52 kg

DRUGS (3)
  1. BUPROPION XL [Concomitant]
     Active Substance: BUPROPION
  2. ALBUTEROL INHALER [Concomitant]
     Active Substance: ALBUTEROL
  3. MIRENA [Suspect]
     Active Substance: LEVONORGESTREL
     Indication: CONTRACEPTION
     Dates: start: 20150701, end: 20151201

REACTIONS (1)
  - Peripheral artery thrombosis [None]

NARRATIVE: CASE EVENT DATE: 20151125
